FAERS Safety Report 20638778 (Version 2)
Quarter: 2022Q4

REPORT INFORMATION
  Report Type: Report from Study
  Country: TH (occurrence: None)
  Receive Date: 20220325
  Receipt Date: 20221129
  Transmission Date: 20230112
  Serious: Yes (Death, Hospitalization)
  Sender: FDA-Public Use
  Company Number: 2021A781270

PATIENT
  Age: 951 Month
  Sex: Male

DRUGS (2)
  1. IRESSA [Suspect]
     Active Substance: GEFITINIB
     Indication: Non-small cell lung cancer
     Route: 048
     Dates: start: 20180522, end: 20220315
  2. TAGRISSO [Suspect]
     Active Substance: OSIMERTINIB
     Indication: Non-small cell lung cancer metastatic
     Route: 048
     Dates: start: 20220316, end: 2022

REACTIONS (6)
  - Death [Fatal]
  - Choking [Recovering/Resolving]
  - Dysphagia [Recovering/Resolving]
  - Metastases to central nervous system [Unknown]
  - Hiccups [Unknown]
  - Drug ineffective [Unknown]

NARRATIVE: CASE EVENT DATE: 20210801
